FAERS Safety Report 4625371-2 (Version None)
Quarter: 2005Q1

REPORT INFORMATION
  Report Type: 
  Country: None (occurrence: None)
  Receive Date: 20050107
  Receipt Date: 20041122
  Transmission Date: 20050727
  Serious: No
  Sender: FDA-Public Use
  Company Number: 235700K04USA

PATIENT
  Age: 52 Year
  Sex: Female

DRUGS (3)
  1. REBIF [Suspect]
     Indication: MULTIPLE SCLEROSIS
     Dosage: 44 MCG, 3 IN 1 WEEKS, SUBCUTANEOUS
     Route: 058
     Dates: start: 20041104
  2. ALEVE [Concomitant]
  3. DURAGESIC (FENTANYL) [Concomitant]

REACTIONS (14)
  - BONE PAIN [None]
  - DYSGEUSIA [None]
  - DYSURIA [None]
  - EAR PAIN [None]
  - FLANK PAIN [None]
  - INJECTION SITE ERYTHEMA [None]
  - LYMPHADENOPATHY [None]
  - MOUTH HAEMORRHAGE [None]
  - NECK PAIN [None]
  - OEDEMA MOUTH [None]
  - OROPHARYNGEAL SWELLING [None]
  - PAIN [None]
  - PAIN IN JAW [None]
  - RASH ERYTHEMATOUS [None]
